FAERS Safety Report 15641689 (Version 1)
Quarter: 2018Q4

REPORT INFORMATION
  Report Type: Spontaneous
  Country: US (occurrence: US)
  Receive Date: 20181121
  Receipt Date: 20181121
  Transmission Date: 20190205
  Serious: Yes (Other)
  Sender: FDA-Public Use
  Company Number: US-ACCORD-070897

PATIENT
  Age: 72 Year
  Sex: Female
  Weight: 83.46 kg

DRUGS (1)
  1. HYDROCHLOROTHIAZIDE ACCORD [Suspect]
     Active Substance: HYDROCHLOROTHIAZIDE
     Indication: BLOOD PRESSURE ABNORMAL
     Dosage: STRENGTH: 25 MG?ONCE A DAY IN THE MORNING
     Route: 048
     Dates: start: 20180803, end: 20180806

REACTIONS (1)
  - Blood glucose increased [Recovering/Resolving]
